FAERS Safety Report 18132437 (Version 1)
Quarter: 2020Q3

REPORT INFORMATION
  Report Type: Spontaneous
  Country: US (occurrence: US)
  Receive Date: 20200811
  Receipt Date: 20200811
  Transmission Date: 20201103
  Serious: Yes (Death, Other)
  Sender: FDA-Public Use
  Company Number: US-ALKEM LABORATORIES LIMITED-US-ALKEM-2020-04449

PATIENT
  Age: 10 Month

DRUGS (1)
  1. OXYCODONE HYDROCHLORIDE. [Suspect]
     Active Substance: OXYCODONE HYDROCHLORIDE
     Indication: PRODUCT USED FOR UNKNOWN INDICATION
     Dosage: UNK
     Route: 063

REACTIONS (6)
  - Lethargy [Unknown]
  - Cardiac arrest [Fatal]
  - Hypersomnia [Unknown]
  - Dyspnoea [Unknown]
  - Toxicity to various agents [Unknown]
  - Exposure via breast milk [Unknown]
